FAERS Safety Report 24556469 (Version 9)
Quarter: 2025Q2

REPORT INFORMATION
  Report Type: Spontaneous
  Country: US (occurrence: US)
  Receive Date: 20241028
  Receipt Date: 20250401
  Transmission Date: 20250716
  Serious: No
  Sender: PFIZER
  Company Number: US-PFIZER INC-PV202400020535

PATIENT
  Age: 70 Year
  Sex: Female
  Weight: 79.37 kg

DRUGS (10)
  1. PREMARIN [Suspect]
     Active Substance: ESTROGENS, CONJUGATED
     Route: 048
     Dates: start: 1985
  2. PREMARIN [Suspect]
     Active Substance: ESTROGENS, CONJUGATED
     Route: 048
  3. PREMARIN [Suspect]
     Active Substance: ESTROGENS, CONJUGATED
     Route: 048
  4. PREMARIN [Suspect]
     Active Substance: ESTROGENS, CONJUGATED
     Route: 048
  5. PREMARIN [Suspect]
     Active Substance: ESTROGENS, CONJUGATED
     Dosage: 0.45 MG, 1X/DAY
     Route: 048
     Dates: start: 2024
  6. AMLODIPINE [Concomitant]
     Active Substance: AMLODIPINE BESYLATE
     Dosage: 20 MG, 2X/DAY
  7. CLARITIN [Concomitant]
     Active Substance: LORATADINE
     Dosage: 10 MG, 1X/DAY
  8. SEROQUEL [Concomitant]
     Active Substance: QUETIAPINE FUMARATE
  9. CLONAZEPAM [Concomitant]
     Active Substance: CLONAZEPAM
  10. MIRAPEX [Concomitant]
     Active Substance: PRAMIPEXOLE DIHYDROCHLORIDE

REACTIONS (5)
  - Drug ineffective [Unknown]
  - Fatigue [Unknown]
  - Depression [Unknown]
  - Pain [Unknown]
  - Intentional product use issue [Unknown]
